FAERS Safety Report 24773543 (Version 1)
Quarter: 2024Q4

REPORT INFORMATION
  Report Type: Report from Study
  Country: US (occurrence: US)
  Receive Date: 20241225
  Receipt Date: 20241225
  Transmission Date: 20250115
  Serious: Yes (Other)
  Sender: NOVARTIS
  Company Number: US-002147023-NVSC2024US076198

PATIENT
  Sex: Female

DRUGS (3)
  1. LEQVIO [Suspect]
     Active Substance: INCLISIRAN SODIUM
     Indication: Product used for unknown indication
     Dosage: UNK
     Route: 058
     Dates: start: 20240312
  2. LEQVIO [Suspect]
     Active Substance: INCLISIRAN SODIUM
     Dosage: UNK
     Route: 058
     Dates: start: 20240604
  3. LEQVIO [Suspect]
     Active Substance: INCLISIRAN SODIUM
     Dosage: UNK, THIRD INJECTION
     Route: 058
     Dates: start: 202412

REACTIONS (8)
  - Neuropathy peripheral [Unknown]
  - Urinary tract infection [Unknown]
  - Myalgia [Unknown]
  - Arthralgia [Unknown]
  - Lipids decreased [Unknown]
  - Pain in extremity [Unknown]
  - Muscle spasms [Unknown]
  - Drug ineffective [Unknown]
